FAERS Safety Report 26081575 (Version 1)
Quarter: 2025Q4

REPORT INFORMATION
  Report Type: Spontaneous
  Country: EU (occurrence: EU)
  Receive Date: 20251124
  Receipt Date: 20251124
  Transmission Date: 20260118
  Serious: Yes (Hospitalization)
  Sender: NOVARTIS
  Company Number: EU-SANDOZ-SDZ2025DE040501

PATIENT
  Sex: Female

DRUGS (2)
  1. COSENTYX [Suspect]
     Active Substance: SECUKINUMAB
     Indication: Product used for unknown indication
     Dosage: 150 MG,150 MG, Q4W,EVERY 4 WEEKS
     Route: 065
     Dates: start: 20230609
  2. ETORICOXIB [Suspect]
     Active Substance: ETORICOXIB
     Indication: Spondylitis
     Dosage: 60 MG, 60 MG, QW,1 DAY PER WEEK
     Route: 065
     Dates: start: 20230414

REACTIONS (1)
  - Osteoarthritis [Recovered/Resolved]

NARRATIVE: CASE EVENT DATE: 20231106
